FAERS Safety Report 23756370 (Version 1)
Quarter: 2024Q2

REPORT INFORMATION
  Report Type: Spontaneous
  Country: US (occurrence: None)
  Receive Date: 20240417
  Receipt Date: 20240417
  Transmission Date: 20240715
  Serious: Yes (Other)
  Sender: FDA-Public Use
  Company Number: None

PATIENT
  Age: 59 Year
  Sex: Female
  Weight: 50.4 kg

DRUGS (8)
  1. MIEBO [Suspect]
     Active Substance: PERFLUOROHEXYLOCTANE
     Indication: Dry eye
     Dosage: 3 ML TWICE  A DAY OPHTHALMIC?
     Route: 047
     Dates: start: 20231014, end: 20231016
  2. SYNTHROID [Concomitant]
     Active Substance: LEVOTHYROXINE SODIUM
  3. ESTRADIOL [Concomitant]
     Active Substance: ESTRADIOL
  4. MEDROXYPROGESTERONE [Concomitant]
     Active Substance: MEDROXYPROGESTERONE
  5. SPIRONOLACTONE [Concomitant]
     Active Substance: SPIRONOLACTONE
  6. ONE -A-DAY WOMEN^S 50 VITAMIN [Concomitant]
  7. CALCIUM [Concomitant]
     Active Substance: CALCIUM
  8. FLAXSEED [Concomitant]
     Active Substance: FLAX SEED

REACTIONS (3)
  - Dacryocanaliculitis [None]
  - Dacryostenosis acquired [None]
  - Nonspecific reaction [None]

NARRATIVE: CASE EVENT DATE: 20231015
